FAERS Safety Report 10495224 (Version 1)
Quarter: 2014Q4

REPORT INFORMATION
  Report Type: Spontaneous
  Country: US (occurrence: None)
  Receive Date: 20141001
  Receipt Date: 20141001
  Transmission Date: 20150528
  Serious: Yes (Other)
  Sender: FDA-Public Use
  Company Number: US-H14001-14-00507

PATIENT
  Age: 68 Year
  Sex: Female
  Weight: 77.11 kg

DRUGS (2)
  1. DOXYCYCLINE HYCLATE (DOXYCYCLINE HYCLATE) [Suspect]
     Active Substance: DOXYCYCLINE HYCLATE
     Indication: STAPHYLOCOCCAL INFECTION
     Dosage: 200 MG (100 MG 2 IN 1 D)
     Route: 048
     Dates: start: 201408, end: 201409
  2. OTC EXTRASTRENGTH TYLENOL (PARACETAMOL) [Concomitant]

REACTIONS (3)
  - Fear [None]
  - Vision blurred [None]
  - Cataract [None]
